FAERS Safety Report 3784733 (Version 1)
Quarter: 2020Q3

REPORT INFORMATION
  Report Type: Spontaneous
  Country: US (occurrence: None)
  Receive Date: 19981218
  Receipt Date: 19981218
  Transmission Date: 20201104
  Serious: No
  Sender: FDA-Public Use
  Company Number: 9835374

PATIENT
  Age: 72 Year
  Sex: Female
  Weight: 73.55 kg

DRUGS (10)
  1. UNSPECIFIED INGREDIENT [Concomitant]
     Active Substance: UNSPECIFIED INGREDIENT
     Indication: ANAESTHESIA
  2. ALATROFLOXACIN MESYLATE. [Suspect]
     Active Substance: ALATROFLOXACIN MESYLATE
     Dosage: 300.00 MG TOTAL: DAILY: INTRAVENOUS
     Route: 042
     Dates: start: 19981020, end: 19981020
  3. PROPOFOL. [Concomitant]
     Active Substance: PROPOFOL
  4. SEVOFLURANE. [Concomitant]
     Active Substance: SEVOFLURANE
  5. MIDAZOLAM HYDROCHLORIDE. [Concomitant]
     Active Substance: MIDAZOLAM HYDROCHLORIDE
  6. PAROXETINE HYDROCHLORIDE. [Concomitant]
     Active Substance: PAROXETINE HYDROCHLORIDE
  7. FENTANYL. [Concomitant]
     Active Substance: FENTANYL
  8. LIDOCAINE. [Concomitant]
     Active Substance: LIDOCAINE
  9. DILTIAZEM. [Concomitant]
     Active Substance: DILTIAZEM
  10. CIMETIDINE. [Concomitant]
     Active Substance: CIMETIDINE

REACTIONS (2)
  - Rash erythematous [None]
  - Blood pressure decreased [None]

NARRATIVE: CASE EVENT DATE: 19981020
